FAERS Safety Report 6536988-2 (Version None)
Quarter: 2010Q1

REPORT INFORMATION
  Report Type: 
  Country: None (occurrence: None)
  Receive Date: 20100107
  Receipt Date: 20081217
  Transmission Date: 20100710
  Serious: Yes (Hospitalization)
  Sender: FDA-Public Use
  Company Number: 2009AP000004

PATIENT
  Age: 16 Year
  Sex: Female

DRUGS (5)
  1. ALBUTEROL SULFATE [Suspect]
     Indication: ASTHMA
     Dosage: 2.5 MG;Q2H;INH
     Route: 055
  2. ALBUTEROL SULFATE [Suspect]
     Indication: CONDITION AGGRAVATED
     Dosage: 2.5 MG;Q2H;INH
     Route: 055
  3. IPRATROPIUM BROMIDE [Suspect]
  4. METHYLPREDNISOLONE [Suspect]
  5. MAGNESIUM SULFATE [Concomitant]

REACTIONS (7)
  - BLOOD PRESSURE INCREASED [None]
  - LACTIC ACIDOSIS [None]
  - LUNG HYPERINFLATION [None]
  - METABOLIC ACIDOSIS [None]
  - NASOPHARYNGITIS [None]
  - TACHYCARDIA [None]
  - TACHYPNOEA [None]
